FAERS Safety Report 19309604 (Version 6)
Quarter: 2021Q2

REPORT INFORMATION
  Report Type: Report from Study
  Country: CO (occurrence: CO)
  Receive Date: 20210526
  Receipt Date: 20210624
  Transmission Date: 20210717
  Serious: Yes (Hospitalization, Other)
  Sender: FDA-Public Use
  Company Number: CO-TAKEDA-2021TUS032606

PATIENT
  Age: 57 Year
  Sex: Male
  Weight: 54 kg

DRUGS (1)
  1. VEDOLIZUMAB [Suspect]
     Active Substance: VEDOLIZUMAB
     Indication: CROHN^S DISEASE
     Dosage: 300 MILLIGRAM
     Route: 042
     Dates: start: 20210419

REACTIONS (6)
  - Malaise [Unknown]
  - Nausea [Unknown]
  - Foot fracture [Unknown]
  - Headache [Unknown]
  - Limb injury [Recovering/Resolving]
  - Accident [Recovered/Resolved]

NARRATIVE: CASE EVENT DATE: 20210518
